FAERS Safety Report 24752544 (Version 1)
Quarter: 2024Q4

REPORT INFORMATION
  Report Type: Other
  Country: PT (occurrence: PT)
  Receive Date: 20241219
  Receipt Date: 20241219
  Transmission Date: 20250114
  Serious: Yes (Other)
  Sender: MACLEODS
  Company Number: PT-JNJFOC-20240813039

PATIENT

DRUGS (9)
  1. DULOXETINE [Suspect]
     Active Substance: DULOXETINE
     Indication: Torticollis
     Route: 065
     Dates: start: 202206
  2. ESCITALOPRAM [Suspect]
     Active Substance: ESCITALOPRAM OXALATE
     Indication: Alcoholism
     Route: 065
     Dates: start: 202110
  3. PREGABALIN [Suspect]
     Active Substance: PREGABALIN
     Indication: Torticollis
     Route: 065
     Dates: start: 202206
  4. LORAZEPAM [Suspect]
     Active Substance: LORAZEPAM
     Indication: Alcoholism
     Route: 065
     Dates: start: 202110
  5. TOPAMAX [Suspect]
     Active Substance: TOPIRAMATE
     Indication: Alcohol withdrawal syndrome
     Route: 048
     Dates: start: 202110
  6. DIAZEPAM [Suspect]
     Active Substance: DIAZEPAM
     Indication: Alcoholism
     Route: 065
     Dates: start: 20231001
  7. AMISULPRIDE [Suspect]
     Active Substance: AMISULPRIDE
     Indication: Alcoholism
     Route: 065
     Dates: start: 20211001, end: 202202
  8. TIAPRIDE [Suspect]
     Active Substance: TIAPRIDE
     Indication: Alcoholism
     Route: 065
     Dates: start: 202110, end: 202202
  9. TRIHEXYPHENIDYL [Suspect]
     Active Substance: TRIHEXYPHENIDYL
     Indication: Torticollis
     Route: 065
     Dates: start: 202206

REACTIONS (2)
  - Torticollis [Unknown]
  - Off label use [Unknown]

NARRATIVE: CASE EVENT DATE: 20220101
